FAERS Safety Report 9935615 (Version 1)
Quarter: 2014Q1

REPORT INFORMATION
  Report Type: Report from Study
  Country: BR (occurrence: BR)
  Receive Date: 20140228
  Receipt Date: 20140228
  Transmission Date: 20141002
  Serious: Yes (Hospitalization)
  Sender: FDA-Public Use
  Company Number: BR-BAXTER-2014BAX008999

PATIENT
  Age: 27 Year
  Sex: Male

DRUGS (5)
  1. ISOTHANE [Suspect]
     Indication: MAINTENANCE OF ANAESTHESIA
     Dosage: UP TO 1 MAC
     Route: 065
  2. MIDAZOLAM [Suspect]
     Indication: ANAESTHESIA
     Route: 065
  3. FENTANYL [Suspect]
     Indication: ANAESTHESIA
     Route: 065
  4. PROPOFOL [Suspect]
     Indication: ANAESTHESIA
     Route: 065
  5. ATRACURIUM [Suspect]
     Indication: ANAESTHESIA
     Route: 065

REACTIONS (1)
  - Hyperthermia malignant [Recovered/Resolved]
